FAERS Safety Report 14659574 (Version 1)
Quarter: 2018Q1

REPORT INFORMATION
  Report Type: Spontaneous
  Country: US (occurrence: US)
  Receive Date: 20180320
  Receipt Date: 20180320
  Transmission Date: 20180509
  Serious: Yes (Hospitalization)
  Sender: FDA-Public Use
  Company Number: US-SA-2018SA043015

PATIENT
  Age: 68 Year
  Sex: Female
  Weight: 54.8 kg

DRUGS (10)
  1. PLAVIX [Suspect]
     Active Substance: CLOPIDOGREL BISULFATE
     Indication: PROPHYLAXIS
     Route: 048
  2. METOPROLOL. [Concomitant]
     Active Substance: METOPROLOL
     Route: 065
     Dates: start: 2006
  3. ADVAIR HFA [Concomitant]
     Active Substance: FLUTICASONE PROPIONATE\SALMETEROL XINAFOATE
     Route: 065
     Dates: start: 2006
  4. COUMADIN [Suspect]
     Active Substance: WARFARIN SODIUM
     Indication: DISEASE RISK FACTOR
     Route: 048
     Dates: start: 20160627
  5. SALMETEROL [Concomitant]
     Active Substance: SALMETEROL
  6. PLAVIX [Suspect]
     Active Substance: CLOPIDOGREL BISULFATE
     Indication: PROPHYLAXIS
     Route: 048
     Dates: start: 20170207
  7. COUMADIN [Suspect]
     Active Substance: WARFARIN SODIUM
     Indication: DISEASE RISK FACTOR
     Route: 048
     Dates: start: 2006, end: 20160623
  8. COUMADIN [Suspect]
     Active Substance: WARFARIN SODIUM
     Indication: DISEASE RISK FACTOR
     Route: 048
     Dates: start: 20170131
  9. COUMADIN [Suspect]
     Active Substance: WARFARIN SODIUM
     Indication: DISEASE RISK FACTOR
     Route: 048
     Dates: start: 20160624
  10. BLINDED THERAPY [Suspect]
     Active Substance: INVESTIGATIONAL PRODUCT
     Indication: WEIGHT CONTROL
     Route: 048
     Dates: start: 20141217, end: 20160602

REACTIONS (3)
  - Haemorrhagic anaemia [Recovered/Resolved]
  - Peripheral arterial occlusive disease [Recovered/Resolved]
  - Cholecystitis chronic [Recovered/Resolved]

NARRATIVE: CASE EVENT DATE: 20160118
